FAERS Safety Report 11403933 (Version 3)
Quarter: 2015Q4

REPORT INFORMATION
  Report Type: Spontaneous
  Country: US (occurrence: US)
  Receive Date: 20150821
  Receipt Date: 20151016
  Transmission Date: 20160304
  Serious: No
  Sender: FDA-Public Use
  Company Number: US-BAYER-2015-397313

PATIENT
  Age: 54 Year
  Sex: Female
  Weight: 47 kg

DRUGS (2)
  1. CLIMARA [Suspect]
     Active Substance: ESTRADIOL
     Indication: MENOPAUSAL SYMPTOMS
     Dosage: 0.025 MG/24HR, OW
     Route: 062
     Dates: start: 201310
  2. PROGESTERONE. [Concomitant]
     Active Substance: PROGESTERONE
     Indication: HORMONE THERAPY
     Dosage: 200 MG, QD
     Route: 048
     Dates: start: 201210

REACTIONS (5)
  - Myalgia [Recovering/Resolving]
  - Middle insomnia [Recovering/Resolving]
  - Hormone level abnormal [None]
  - Product use issue [None]
  - Headache [Recovering/Resolving]

NARRATIVE: CASE EVENT DATE: 20150719
